FAERS Safety Report 17330393 (Version 1)
Quarter: 2020Q1

REPORT INFORMATION
  Report Type: Spontaneous
  Country: US (occurrence: US)
  Receive Date: 20200127
  Receipt Date: 20200127
  Transmission Date: 20200409
  Serious: Yes (Other)
  Sender: FDA-Public Use
  Company Number: NVSC2020US019346

PATIENT
  Age: 52 Year
  Sex: Female

DRUGS (2)
  1. VOLTAREN [Suspect]
     Active Substance: DICLOFENAC SODIUM
     Indication: PAIN
  2. VOLTAREN [Suspect]
     Active Substance: DICLOFENAC SODIUM
     Indication: NECK PAIN
     Dosage: UNK (USED FOR 2 DAYS FOR ONCE OR TWICE A DAY)
     Route: 065
     Dates: start: 20200114, end: 20200115

REACTIONS (9)
  - Product use in unapproved indication [Unknown]
  - Product administered at inappropriate site [Unknown]
  - Prescription drug used without a prescription [Unknown]
  - Headache [Unknown]
  - Facial paralysis [Unknown]
  - Inappropriate schedule of product administration [Unknown]
  - Expired product administered [Unknown]
  - Pain in jaw [Unknown]
  - Eyelid function disorder [Unknown]

NARRATIVE: CASE EVENT DATE: 20200114
